FAERS Safety Report 9797456 (Version 2)
Quarter: 2014Q1

REPORT INFORMATION
  Report Type: Spontaneous
  Country: US (occurrence: None)
  Receive Date: 20131231
  Receipt Date: 20140219
  Transmission Date: 20141002
  Serious: Yes (Life-Threatening)
  Sender: FDA-Public Use
  Company Number: 2013US002912

PATIENT
  Age: 63 Year
  Sex: Male

DRUGS (2)
  1. PONATINIB [Suspect]
     Indication: CHRONIC MYELOID LEUKAEMIA
     Route: 048
     Dates: start: 20130422, end: 20130528
  2. SIMVASTATIN (SIMVASTATIN) [Concomitant]

REACTIONS (1)
  - Thrombocytopenia [None]
